FAERS Safety Report 6098109-2 (Version None)
Quarter: 2009Q1

REPORT INFORMATION
  Report Type: 
  Country: None (occurrence: None)
  Receive Date: 20090227
  Receipt Date: 20090224
  Transmission Date: 20090719
  Serious: No
  Sender: FDA-Public Use
  Company Number: US-B.I. PHARMACEUTICALS,INC./RIDGEFIELD-2009-BP-02301BP

PATIENT
  Age: 51 Year
  Sex: Male

DRUGS (13)
  1. FLOMAX [Suspect]
     Indication: NOCTURIA
     Dosage: .4MG
     Route: 048
     Dates: start: 20090211
  2. FLOMAX [Suspect]
     Indication: PROSTATE CANCER
  3. METOPROLOL [Concomitant]
     Indication: HYPERTENSION
  4. LIPITOR [Concomitant]
     Indication: BLOOD CHOLESTEROL INCREASED
  5. VOLTAREN [Concomitant]
     Indication: BACK PAIN
  6. BACLOFEN [Concomitant]
     Indication: BACK PAIN
  7. TRAMADOL HCL [Concomitant]
     Indication: BACK PAIN
  8. ZOMIG [Concomitant]
     Indication: MIGRAINE
  9. PREVACID [Concomitant]
     Indication: GASTROOESOPHAGEAL REFLUX DISEASE
  10. CLARITIN [Concomitant]
     Indication: HYPERSENSITIVITY
  11. CASODEX [Concomitant]
     Indication: PROSTATE CANCER
  12. LUPRON [Concomitant]
     Indication: PROSTATE CANCER
  13. PROSCAR [Concomitant]
     Indication: PROSTATE CANCER

REACTIONS (2)
  - DIZZINESS [None]
  - MEDICATION ERROR [None]
